FAERS Safety Report 8559642 (Version 2)
Quarter: 2014Q1

REPORT INFORMATION
  Report Type: Spontaneous
  Country: US (occurrence: US)
  Receive Date: 20120514
  Receipt Date: 20140121
  Transmission Date: 20141002
  Serious: Yes (Other)
  Sender: FDA-Public Use
  Company Number: US-BAYER-2012-046355

PATIENT
  Age: 19 Year
  Sex: Female

DRUGS (5)
  1. YASMIN [Suspect]
  2. YAZ [Suspect]
  3. PEPCID [Concomitant]
     Dosage: UNK UNK, BID
  4. OMEPRAZOLE [Concomitant]
  5. COMPAZINE [Concomitant]
     Indication: NAUSEA

REACTIONS (6)
  - Gallbladder injury [None]
  - Injury [None]
  - Pain [None]
  - Anxiety [None]
  - Anhedonia [None]
  - Quality of life decreased [None]
